FAERS Safety Report 11913963 (Version 3)
Quarter: 2017Q3

REPORT INFORMATION
  Report Type: Report from Study
  Country: US (occurrence: US)
  Receive Date: 20160113
  Receipt Date: 20170928
  Transmission Date: 20171127
  Serious: Yes (Hospitalization)
  Sender: FDA-Public Use
  Company Number: US-ACTELION-A-US2016-129745

PATIENT
  Age: 68 Year
  Sex: Female
  Weight: 92.97 kg

DRUGS (3)
  1. OPSUMIT [Suspect]
     Active Substance: MACITENTAN
     Indication: PULMONARY ARTERIAL HYPERTENSION
     Dosage: 10 MG, QD
     Route: 048
     Dates: start: 20141118
  2. PLAVIX [Concomitant]
     Active Substance: CLOPIDOGREL BISULFATE
  3. DILTIAZEM. [Concomitant]
     Active Substance: DILTIAZEM

REACTIONS (9)
  - Oesophageal polyp [Unknown]
  - Constipation [Unknown]
  - Cholelithiasis [Unknown]
  - Impaired gastric emptying [Unknown]
  - Syncope [Unknown]
  - Polypectomy [Unknown]
  - Staphylococcal infection [Unknown]
  - Diabetes mellitus [Unknown]
  - Toe amputation [Unknown]
